FAERS Safety Report 8108753-6 (Version None)
Quarter: 2012Q1

REPORT INFORMATION
  Report Type: 
  Country: None (occurrence: None)
  Receive Date: 20120202
  Receipt Date: 20120127
  Transmission Date: 20120608
  Serious: Yes (Other)
  Sender: FDA-Public Use
  Company Number: PHHY2011TR102407

PATIENT
  Age: 38 Year
  Sex: Female

DRUGS (3)
  1. OLANZAPINE [Interacting]
     Dosage: 30 MG PER DAY
  2. OLANZAPINE [Interacting]
     Indication: SCHIZOPHRENIA
     Dosage: 10 MG, QD
  3. MIRTAZAPINE [Suspect]
     Indication: SCHIZOPHRENIA
     Dosage: 30 MG, QD

REACTIONS (2)
  - DRUG INTERACTION [None]
  - OEDEMA PERIPHERAL [None]
